FAERS Safety Report 7133453-9 (Version None)
Quarter: 2010Q4

REPORT INFORMATION
  Report Type: 
  Country: None (occurrence: None)
  Receive Date: 20101202
  Receipt Date: 20101124
  Transmission Date: 20110411
  Serious: Yes (Other)
  Sender: FDA-Public Use
  Company Number: DE-AMGEN-DEUSP2010006274

PATIENT

DRUGS (8)
  1. NPLATE [Suspect]
     Indication: IDIOPATHIC THROMBOCYTOPENIC PURPURA
     Dosage: UNK, QWK
     Route: 058
     Dates: start: 20090604, end: 20100817
  2. SANDIMMUNE [Concomitant]
     Dosage: 160 MG, UNK
     Dates: start: 20061223
  3. COTRIM [Concomitant]
     Dosage: 960 MG, 3 TIMES/WK
  4. IBUPROFEN [Concomitant]
     Dosage: 400 UNK, UNK
  5. HCT [Concomitant]
  6. BISOPROLOL FUMARATE [Concomitant]
  7. AQUAPHOR                           /00298701/ [Concomitant]
  8. NEXIUM [Concomitant]

REACTIONS (5)
  - ANAPHYLACTIC REACTION [None]
  - CHILLS [None]
  - HYPERSENSITIVITY [None]
  - PYREXIA [None]
  - THERAPEUTIC RESPONSE DECREASED [None]
